FAERS Safety Report 7907834-7 (Version None)
Quarter: 2011Q4

REPORT INFORMATION
  Report Type: 
  Country: None (occurrence: None)
  Receive Date: 20111110
  Receipt Date: 20111103
  Transmission Date: 20120403
  Serious: Yes (Disabling)
  Sender: FDA-Public Use
  Company Number: GB-PFIZER INC-2011162950

PATIENT
  Age: 49 Year
  Sex: Female
  Weight: 55 kg

DRUGS (8)
  1. AMITRIPTYLINE [Concomitant]
     Indication: PAIN
     Dosage: 40 MG, AT NIGHT
     Route: 048
  2. SALBUTAMOL [Concomitant]
  3. MEBEVERINE [Concomitant]
     Indication: IRRITABLE BOWEL SYNDROME
     Dosage: 135 MG, 3X/DAY
     Route: 048
  4. ZYVOX [Suspect]
     Indication: ENTEROCOCCAL INFECTION
     Dosage: 600 MG, 2X/DAY
     Route: 048
     Dates: start: 20110119, end: 20110525
  5. CITALOPRAM [Concomitant]
     Indication: DEPRESSION
     Dosage: 60 MG, IN MORNING
     Route: 048
  6. COTRIM [Concomitant]
     Indication: SPINAL INFECTION VIRAL
     Dosage: 960 MG, 2X/DAY
     Route: 048
  7. GABAPENTIN [Concomitant]
     Indication: PAIN
     Dosage: 300 MG, 3X/DAY
     Route: 048
  8. CYCLIZINE [Concomitant]

REACTIONS (6)
  - PAIN [None]
  - ASTHENIA [None]
  - NEUROPATHY PERIPHERAL [None]
  - SENSORY DISTURBANCE [None]
  - HYPOAESTHESIA [None]
  - DYSAESTHESIA [None]
